FAERS Safety Report 18910763 (Version 1)
Quarter: 2021Q1

REPORT INFORMATION
  Report Type: Spontaneous
  Country: GB (occurrence: GB)
  Receive Date: 20210218
  Receipt Date: 20210218
  Transmission Date: 20210420
  Serious: Yes (Other)
  Sender: FDA-Public Use
  Company Number: GB-HIKMA PHARMACEUTICALS USA INC.-GB-H14001-21-53599

PATIENT
  Age: 60 Year
  Sex: Male
  Weight: 77.2 kg

DRUGS (1)
  1. CALCIUM FOLINATE [Suspect]
     Active Substance: LEUCOVORIN CALCIUM
     Indication: PRODUCT USED FOR UNKNOWN INDICATION
     Dosage: OXALIPLATIN 120MG/ CALCIUM FOLINATE 350
     Route: 042
     Dates: start: 20210120, end: 20210120

REACTIONS (1)
  - Documented hypersensitivity to administered product [Recovered/Resolved]

NARRATIVE: CASE EVENT DATE: 20210120
